FAERS Safety Report 10904225 (Version 2)
Quarter: 2015Q3

REPORT INFORMATION
  Report Type: Spontaneous
  Country: FI (occurrence: None)
  Receive Date: 20150306
  Receipt Date: 20150716
  Transmission Date: 20151125
  Serious: Yes (Hospitalization)
  Sender: FDA-Public Use
  Company Number: COL_19247_2015

PATIENT
  Age: 27 Year
  Sex: Female

DRUGS (5)
  1. SYMBICORT [Concomitant]
     Active Substance: BUDESONIDE\FORMOTEROL FUMARATE DIHYDRATE
  2. IBUPROFEN. [Concomitant]
     Active Substance: IBUPROFEN
  3. THYROXIN [Concomitant]
     Active Substance: LEVOTHYROXINE
  4. COLGATE DURAPHAT [Suspect]
     Active Substance: SODIUM FLUORIDE
     Indication: DENTAL CARIES
     Route: 048
     Dates: start: 20150205, end: 20150208
  5. HYDROCORTISONE. [Concomitant]
     Active Substance: HYDROCORTISONE

REACTIONS (7)
  - Pharyngeal hypoaesthesia [None]
  - Hypoaesthesia [None]
  - Back pain [None]
  - Nausea [None]
  - Toxicity to various agents [None]
  - Seizure [None]
  - Hypersensitivity [None]

NARRATIVE: CASE EVENT DATE: 20150208
